FAERS Safety Report 4956557-5 (Version None)
Quarter: 2006Q1

REPORT INFORMATION
  Report Type: 
  Country: None (occurrence: None)
  Receive Date: 20060329
  Receipt Date: 20060314
  Transmission Date: 20060701
  Serious: Yes (Disabling)
  Sender: FDA-Public Use
  Company Number: AU-MERCK-0603AUS00109

PATIENT
  Age: 61 Year
  Sex: Male
  Weight: 70 kg

DRUGS (2)
  1. FOSAMAX [Suspect]
     Indication: OSTEOPOROSIS
     Route: 048
     Dates: start: 20060311, end: 20060312
  2. PRAZOSIN HYDROCHLORIDE [Concomitant]
     Route: 065
     Dates: start: 20051001

REACTIONS (3)
  - MALAISE [None]
  - MYALGIA [None]
  - PAIN [None]
